FAERS Safety Report 15490795 (Version 2)
Quarter: 2018Q4

REPORT INFORMATION
  Report Type: Spontaneous
  Country: US (occurrence: US)
  Receive Date: 20181011
  Receipt Date: 20181210
  Transmission Date: 20190205
  Serious: Yes (Hospitalization, Disabling, Other)
  Sender: FDA-Public Use
  Company Number: US-ABBVIE-18K-163-2515716-00

PATIENT
  Age: 25 Year
  Sex: Female

DRUGS (2)
  1. PRENATAL VITAMINS [Concomitant]
     Active Substance: VITAMINS
     Indication: PRODUCT USED FOR UNKNOWN INDICATION
  2. HUMIRA [Suspect]
     Active Substance: ADALIMUMAB
     Indication: PRODUCT USED FOR UNKNOWN INDICATION
     Route: 058
     Dates: start: 2008, end: 200910

REACTIONS (27)
  - Crohn^s disease [Recovered/Resolved]
  - Exercise tolerance decreased [Unknown]
  - Gastrointestinal disorder [Not Recovered/Not Resolved]
  - Impaired healing [Not Recovered/Not Resolved]
  - Antiphospholipid syndrome [Recovered/Resolved]
  - Abdominal adhesions [Recovered/Resolved]
  - Ovarian disorder [Not Recovered/Not Resolved]
  - Medical device site infection [Recovered/Resolved]
  - White blood cell count increased [Recovered/Resolved]
  - Portal vein thrombosis [Recovering/Resolving]
  - Intestinal perforation [Recovered/Resolved]
  - Gastrointestinal hypomotility [Not Recovered/Not Resolved]
  - Exposure during pregnancy [Unknown]
  - Normal newborn [Unknown]
  - High risk pregnancy [Unknown]
  - Impaired work ability [Unknown]
  - Intestinal perforation [Recovered/Resolved]
  - Infection [Recovered/Resolved]
  - Anaemia [Recovered/Resolved]
  - Pain [Recovered/Resolved]
  - Enterocutaneous fistula [Recovered/Resolved]
  - Female genital tract fistula [Recovered/Resolved]
  - Drug ineffective [Not Recovered/Not Resolved]
  - Intestinal fistula [Recovered/Resolved]
  - Pain [Recovered/Resolved]
  - Peritonitis [Recovered/Resolved]
  - Infertility [Unknown]

NARRATIVE: CASE EVENT DATE: 2009
